FAERS Safety Report 4314111-2 (Version None)
Quarter: 2004Q1

REPORT INFORMATION
  Report Type: 
  Country: None (occurrence: None)
  Receive Date: 20040305
  Receipt Date: 20030401
  Transmission Date: 20041129
  Serious: Yes (Other)
  Sender: FDA-Public Use
  Company Number: 200315809BWH

PATIENT
  Age: 72 Year
  Sex: Male
  Weight: 117.028 kg

DRUGS (4)
  1. CIPRO IV [Suspect]
     Indication: BIOPSY PROSTATE
     Dosage: 400 MG, TOTAL DAILY; INTRAVENOUS
     Route: 042
     Dates: start: 20030325
  2. CIPRO IV [Suspect]
     Indication: PROPHYLAXIS
     Dosage: 400 MG, TOTAL DAILY; INTRAVENOUS
     Route: 042
     Dates: start: 20030325
  3. PROSCAR [Concomitant]
  4. LISINOPRIL [Concomitant]

REACTIONS (5)
  - ANAPHYLACTIC REACTION [None]
  - FLUSHING [None]
  - HYPOTENSION [None]
  - PRURITUS [None]
  - RASH [None]
